FAERS Safety Report 11922155 (Version 5)
Quarter: 2017Q1

REPORT INFORMATION
  Report Type: Report from Study
  Country: US (occurrence: US)
  Receive Date: 20160115
  Receipt Date: 20170307
  Transmission Date: 20170428
  Serious: Yes (Hospitalization)
  Sender: FDA-Public Use
  Company Number: US-EISAI MEDICAL RESEARCH-EC-2016-013575

PATIENT
  Sex: Male
  Weight: 90.7 kg

DRUGS (16)
  1. XGEVA [Concomitant]
     Active Substance: DENOSUMAB
  2. LENVIMA [Suspect]
     Active Substance: LENVATINIB
     Route: 048
     Dates: start: 2016, end: 201702
  3. LEVOXYL [Concomitant]
     Active Substance: LEVOTHYROXINE SODIUM
  4. LENVIMA [Suspect]
     Active Substance: LENVATINIB
     Route: 048
     Dates: start: 201702
  5. TYLENOL [Concomitant]
     Active Substance: ACETAMINOPHEN
  6. DIGOXIN. [Concomitant]
     Active Substance: DIGOXIN
  7. LENVIMA [Suspect]
     Active Substance: LENVATINIB
     Route: 048
     Dates: start: 20160105, end: 201603
  8. ADALAT [Concomitant]
     Active Substance: NIFEDIPINE
  9. GLYCERING SUPPOSITORY [Concomitant]
  10. MELOXICAM. [Concomitant]
     Active Substance: MELOXICAM
  11. LENVIMA [Suspect]
     Active Substance: LENVATINIB
     Indication: THYROID CANCER
     Route: 048
     Dates: start: 201510, end: 201601
  12. HCTZ [Concomitant]
     Active Substance: HYDROCHLOROTHIAZIDE
  13. GARLIC EXTRACT [Concomitant]
     Active Substance: GARLIC
  14. ATENOLOL. [Concomitant]
     Active Substance: ATENOLOL
  15. MULTIVITAMIN [Concomitant]
     Active Substance: VITAMINS
  16. POTASSIUM [Concomitant]
     Active Substance: POTASSIUM

REACTIONS (4)
  - Pulmonary haemorrhage [Recovered/Resolved]
  - Palmar-plantar erythrodysaesthesia syndrome [Unknown]
  - Blood pressure increased [Recovering/Resolving]
  - Mouth haemorrhage [Unknown]

NARRATIVE: CASE EVENT DATE: 2016
